FAERS Safety Report 25491607 (Version 1)
Quarter: 2025Q2

REPORT INFORMATION
  Report Type: Spontaneous
  Country: GB (occurrence: GB)
  Receive Date: 20250629
  Receipt Date: 20250629
  Transmission Date: 20250717
  Serious: Yes (Hospitalization, Other)
  Sender: SANOFI AVENTIS
  Company Number: None

PATIENT
  Age: 82 Year
  Sex: Female

DRUGS (13)
  1. TEICOPLANIN [Suspect]
     Active Substance: TEICOPLANIN
     Dosage: 1000 MG, QD
     Dates: start: 20250502, end: 20250608
  2. RIFAMPIN [Suspect]
     Active Substance: RIFAMPIN
     Dosage: 450 MG, BID
     Dates: start: 20250402, end: 20250608
  3. DALTEPARIN [Concomitant]
     Active Substance: DALTEPARIN
  4. Ims frusemide [Concomitant]
  5. POLYETHYLENE GLYCOL 3350\POTASSIUM CHLORIDE\SODIUM BICARBONATE\SODIUM [Concomitant]
     Active Substance: POLYETHYLENE GLYCOL 3350\POTASSIUM CHLORIDE\SODIUM BICARBONATE\SODIUM CHLORIDE
  6. MORPHINE [Concomitant]
     Active Substance: MORPHINE
  7. CYCLIZINE [Concomitant]
     Active Substance: CYCLIZINE
  8. FAMOTIDINE [Concomitant]
     Active Substance: FAMOTIDINE
  9. LOSARTAN [Concomitant]
     Active Substance: LOSARTAN
  10. ONDANSETRON [Concomitant]
     Active Substance: ONDANSETRON
  11. ACETAMINOPHEN [Concomitant]
     Active Substance: ACETAMINOPHEN
  12. SPIRONOLACTONE [Concomitant]
     Active Substance: SPIRONOLACTONE
  13. MIRABEGRON [Concomitant]
     Active Substance: MIRABEGRON

REACTIONS (1)
  - Immune thrombocytopenia [Recovering/Resolving]

NARRATIVE: CASE EVENT DATE: 20250606
